FAERS Safety Report 13284233 (Version 2)
Quarter: 2017Q1

REPORT INFORMATION
  Report Type: Spontaneous
  Country: US (occurrence: US)
  Receive Date: 20170301
  Receipt Date: 20170328
  Transmission Date: 20170428
  Serious: Yes (Other)
  Sender: FDA-Public Use
  Company Number: US-ALEXION PHARMACEUTICALS INC.-A201701988

PATIENT
  Sex: Male

DRUGS (1)
  1. KANUMA [Suspect]
     Active Substance: SEBELIPASE ALFA
     Indication: PRODUCT USED FOR UNKNOWN INDICATION
     Route: 042

REACTIONS (4)
  - Arnold-Chiari malformation [Unknown]
  - Musculoskeletal stiffness [Unknown]
  - Headache [Unknown]
  - Malaise [Unknown]
